FAERS Safety Report 20611299 (Version 2)
Quarter: 2022Q1

REPORT INFORMATION
  Report Type: Report from Study
  Country: GB (occurrence: None)
  Receive Date: 20220318
  Receipt Date: 20220323
  Transmission Date: 20220423
  Serious: Yes (Hospitalization)
  Sender: FDA-Public Use
  Company Number: GB-Eisai Medical Research-EC-2022-110943

PATIENT
  Age: 69 Year
  Sex: Male
  Weight: 64.4 kg

DRUGS (20)
  1. LENVATINIB [Suspect]
     Active Substance: LENVATINIB
     Indication: Adenocarcinoma gastric
     Route: 048
     Dates: start: 20220204, end: 20220224
  2. LENVATINIB [Suspect]
     Active Substance: LENVATINIB
     Indication: Oesophageal adenocarcinoma
     Dosage: UNKNOWN DOSE
     Route: 048
     Dates: start: 20220225, end: 2022
  3. PEMBROLIZUMAB [Suspect]
     Active Substance: PEMBROLIZUMAB
     Indication: Adenocarcinoma gastric
     Route: 041
     Dates: start: 20220204, end: 20220204
  4. PEMBROLIZUMAB [Suspect]
     Active Substance: PEMBROLIZUMAB
     Indication: Oesophageal adenocarcinoma
  5. OXALIPLATIN [Suspect]
     Active Substance: OXALIPLATIN
     Indication: Adenocarcinoma gastric
     Route: 041
     Dates: start: 20220204, end: 20220204
  6. OXALIPLATIN [Suspect]
     Active Substance: OXALIPLATIN
     Indication: Oesophageal adenocarcinoma
     Route: 041
     Dates: start: 20220225, end: 20220225
  7. CAPECITABINE [Suspect]
     Active Substance: CAPECITABINE
     Indication: Oesophageal adenocarcinoma
     Dosage: FREQUENCY: BID FOR 14 DAYS EVERY 3 WEEKS
     Route: 048
     Dates: start: 20220204, end: 20220217
  8. CAPECITABINE [Suspect]
     Active Substance: CAPECITABINE
     Indication: Adenocarcinoma gastric
     Dosage: FREQUENCY: BID FOR 14 DAYS EVERY 3 WEEKS
     Route: 048
     Dates: start: 20220225, end: 2022
  9. FERROUS SULFATE [Concomitant]
     Active Substance: FERROUS SULFATE
     Dates: start: 20211201
  10. DALTEPARIN SODIUM [Concomitant]
     Active Substance: DALTEPARIN SODIUM
     Dates: start: 20220127
  11. SENNA+ [Concomitant]
     Dates: start: 20220207
  12. POLYFUSOR PHOSPHAT [Concomitant]
     Dates: start: 20220225, end: 20220225
  13. EPINEPHRINE [Concomitant]
     Active Substance: EPINEPHRINE
     Dates: start: 20220225, end: 20220225
  14. MAGNESIUM ASPARTATE [Concomitant]
     Active Substance: MAGNESIUM ASPARTATE
     Dates: start: 20220225, end: 20220226
  15. CHLORPHENIRAMINE [Concomitant]
     Active Substance: CHLORPHENIRAMINE
     Dates: start: 20220225, end: 20220225
  16. BENZYDAMINE HYDROCHLORIDE [Concomitant]
     Active Substance: BENZYDAMINE HYDROCHLORIDE
     Dates: start: 20220225
  17. MEROPENEM [Concomitant]
     Active Substance: MEROPENEM
     Dates: start: 20220225, end: 20220225
  18. SODIUM CHLORIDE [Concomitant]
     Active Substance: SODIUM CHLORIDE
     Dates: start: 20220225, end: 20220225
  19. HYDROCORTISONE [Concomitant]
     Active Substance: HYDROCORTISONE
     Dates: start: 20220225, end: 20220225
  20. ALBUTEROL [Concomitant]
     Active Substance: ALBUTEROL
     Dates: start: 20220225, end: 20220225

REACTIONS (2)
  - Gastric haemorrhage [Recovered/Resolved]
  - Gastritis [Not Recovered/Not Resolved]

NARRATIVE: CASE EVENT DATE: 20220309
